FAERS Safety Report 5983243-5 (Version None)
Quarter: 2008Q4

REPORT INFORMATION
  Report Type: 
  Country: None (occurrence: None)
  Receive Date: 20081208
  Receipt Date: 20080612
  Transmission Date: 20090506
  Serious: No
  Sender: FDA-Public Use
  Company Number: US-BAYER-200812726BCC

PATIENT
  Age: 19 Year
  Sex: Female
  Weight: 48 kg

DRUGS (1)
  1. ALEVE-D SINUS + COLD [Suspect]
     Indication: HEADACHE
     Dosage: TOTAL DAILY DOSE: 8 DF
     Route: 065
     Dates: start: 20080611, end: 20080612

REACTIONS (2)
  - HEADACHE [None]
  - TINNITUS [None]
